FAERS Safety Report 21556997 (Version 3)
Quarter: 2023Q4

REPORT INFORMATION
  Report Type: Report from Study
  Country: AT (occurrence: AT)
  Receive Date: 20221104
  Receipt Date: 20231107
  Transmission Date: 20240109
  Serious: Yes (Hospitalization)
  Sender: FDA-Public Use
  Company Number: AT-ROCHE-2754571

PATIENT
  Age: 45 Year
  Sex: Female
  Weight: 65 kg

DRUGS (30)
  1. TRASTUZUMAB [Suspect]
     Active Substance: TRASTUZUMAB
     Indication: Breast cancer metastatic
     Dosage: 8 MILLIGRAM/KILOGRAM, Q3W MOST RECENT DOSE PRIOR
     Route: 042
     Dates: start: 20181016, end: 20200226
  2. TRASTUZUMAB [Suspect]
     Active Substance: TRASTUZUMAB
     Indication: HER2 positive breast cancer
  3. CAPECITABINE [Suspect]
     Active Substance: CAPECITABINE
     Indication: Breast cancer metastatic
     Dosage: 75 MILLIGRAM/SQ. METER, BID, MOST RECENT DOSE
     Route: 048
     Dates: start: 20200715, end: 202109
  4. CAPECITABINE [Suspect]
     Active Substance: CAPECITABINE
     Indication: HER2 positive breast cancer
  5. PACLITAXEL [Suspect]
     Active Substance: PACLITAXEL
     Indication: Breast cancer metastatic
     Dosage: 135.48 MILLIGRAM/KILOGRAM, QW MOST RECENT DOSE
     Route: 042
     Dates: start: 20181017, end: 20200226
  6. PACLITAXEL [Suspect]
     Active Substance: PACLITAXEL
     Indication: HER2 positive breast cancer
  7. LAPATINIB [Suspect]
     Active Substance: LAPATINIB
     Indication: Breast cancer metastatic
     Dosage: 1250 MILLIGRAM, QD MOST RECENT DOSE PRIOR TO AE 4
     Route: 048
     Dates: start: 20200715, end: 20210804
  8. LAPATINIB [Suspect]
     Active Substance: LAPATINIB
     Indication: HER2 positive breast cancer
  9. PERTUZUMAB [Suspect]
     Active Substance: PERTUZUMAB
     Indication: Breast cancer metastatic
     Dosage: 840 MILLIGRAM, Q3W MOST RECENT DOSE PRIOR TO AE 2
     Route: 042
     Dates: start: 20181016, end: 20200226
  10. PERTUZUMAB [Suspect]
     Active Substance: PERTUZUMAB
     Indication: HER2 positive breast cancer
  11. DENOSUMAB [Suspect]
     Active Substance: DENOSUMAB
     Indication: Breast cancer metastatic
     Dosage: 120 MILLIGRAM/KILOGRAM, MONTHLY
     Route: 058
     Dates: start: 20190326
  12. DENOSUMAB [Suspect]
     Active Substance: DENOSUMAB
     Indication: HER2 positive breast cancer
  13. ADO-TRASTUZUMAB EMTANSINE [Suspect]
     Active Substance: ADO-TRASTUZUMAB EMTANSINE
     Indication: Breast cancer metastatic
     Dosage: 3.6 MILLIGRAM/KILOGRAM, Q3W
     Route: 042
     Dates: start: 20200227, end: 20200703
  14. ADO-TRASTUZUMAB EMTANSINE [Suspect]
     Active Substance: ADO-TRASTUZUMAB EMTANSINE
     Indication: HER2 positive breast cancer
  15. Paspertin [Concomitant]
     Dosage: ONGOING = CHECKED
     Route: 065
     Dates: start: 20181023
  16. EMEND [Concomitant]
     Active Substance: APREPITANT
     Dosage: ONGOING = CHECKED
     Route: 065
     Dates: start: 20181120
  17. BUPRENORPHINE HYDROCHLORIDE [Concomitant]
     Active Substance: BUPRENORPHINE HYDROCHLORIDE
     Dosage: ONGOING = CHECKED
     Route: 065
     Dates: start: 20181023
  18. ZOFRAN [Concomitant]
     Active Substance: ONDANSETRON HYDROCHLORIDE
     Dosage: ONGOING = CHECKED
     Route: 065
     Dates: start: 20181023
  19. CAPSAICIN [Concomitant]
     Active Substance: CAPSAICIN
     Indication: General physical health deterioration
     Dosage: ONGOING = NOT CHECKED
     Route: 065
     Dates: start: 20200826
  20. Paracodin [Concomitant]
     Dosage: ONGOING = CHECKED
     Route: 065
     Dates: start: 20180715
  21. RANITIDINE HYDROCHLORIDE [Concomitant]
     Active Substance: RANITIDINE HYDROCHLORIDE
     Dosage: ONGOING = CHECKED
     Route: 065
     Dates: start: 20181017
  22. LACTULOSE [Concomitant]
     Active Substance: LACTULOSE
     Dosage: ONGOING = CHECKED
     Route: 065
     Dates: start: 20200826
  23. DIPHENHYDRAMINE HYDROCHLORIDE [Concomitant]
     Active Substance: DIPHENHYDRAMINE HYDROCHLORIDE
     Dosage: ONGOING = CHECKED
     Route: 065
  24. ZOFRAN [Concomitant]
     Active Substance: ONDANSETRON HYDROCHLORIDE
     Dosage: ONGOING = CHECKED
     Route: 065
     Dates: start: 20181017
  25. NEURONTIN [Concomitant]
     Active Substance: GABAPENTIN
     Dosage: ONGOING = CHECKED
     Route: 065
     Dates: start: 20181023
  26. Novalgin [Concomitant]
     Dosage: ONGOING = CHECKED
     Route: 065
     Dates: start: 20181023
  27. DEXAMETHASONE [Concomitant]
     Active Substance: DEXAMETHASONE
     Dosage: ONGOING = CHECKED
     Route: 065
     Dates: start: 20181017
  28. Astec [Concomitant]
     Dosage: ONGOING = CHECKED
     Route: 065
     Dates: start: 20181023
  29. POLYETHYLENE GLYCOL 3350\POTASSIUM CHLORIDE\SODIUM BICARBONATE\SODIUM [Concomitant]
     Active Substance: POLYETHYLENE GLYCOL 3350\POTASSIUM CHLORIDE\SODIUM BICARBONATE\SODIUM CHLORIDE
     Dosage: ONGOING = CHECKED
     Route: 065
     Dates: start: 20181023
  30. HYDROMORPHONE HYDROCHLORIDE [Concomitant]
     Active Substance: HYDROMORPHONE HYDROCHLORIDE
     Indication: General physical health deterioration
     Dosage: ONGOING = CHECKED
     Route: 065
     Dates: start: 20200826

REACTIONS (2)
  - General physical health deterioration [Recovered/Resolved]
  - Ejection fraction decreased [Recovered/Resolved]

NARRATIVE: CASE EVENT DATE: 20200806
